FAERS Safety Report 14514616 (Version 2)
Quarter: 2018Q1

REPORT INFORMATION
  Report Type: Spontaneous
  Country: US (occurrence: US)
  Receive Date: 20180209
  Receipt Date: 20180320
  Transmission Date: 20180509
  Serious: Yes (Other)
  Sender: FDA-Public Use
  Company Number: US-BAUSCH-BL-2018-002716

PATIENT
  Age: 12 Day
  Sex: Female
  Weight: 6.3 kg

DRUGS (1)
  1. NIFEDIPINE EXTENDED RELEASE TABLETS [Suspect]
     Active Substance: NIFEDIPINE
     Indication: PRODUCT USED FOR UNKNOWN INDICATION
     Route: 063
     Dates: start: 201801, end: 201802

REACTIONS (2)
  - Haematochezia [Recovered/Resolved]
  - Exposure via breast milk [Unknown]

NARRATIVE: CASE EVENT DATE: 201801
